FAERS Safety Report 9197268 (Version 1)
Quarter: 2013Q1

REPORT INFORMATION
  Report Type: Spontaneous
  Country: FI (occurrence: FI)
  Receive Date: 20130328
  Receipt Date: 20130328
  Transmission Date: 20140127
  Serious: Yes (Other)
  Sender: FDA-Public Use
  Company Number: FI-ROCHE-1207383

PATIENT
  Age: 16 Year
  Sex: Male

DRUGS (2)
  1. ZELBORAF [Suspect]
     Indication: METASTATIC MALIGNANT MELANOMA
     Route: 065
     Dates: start: 20121219
  2. ZELBORAF [Suspect]
     Route: 065
     Dates: start: 20130107

REACTIONS (1)
  - Metastases to central nervous system [Unknown]
